FAERS Safety Report 11050690 (Version 4)
Quarter: 2015Q2

REPORT INFORMATION
  Report Type: Report from Study
  Country: US (occurrence: US)
  Receive Date: 20150421
  Receipt Date: 20150618
  Transmission Date: 20150821
  Serious: Yes (Other)
  Sender: FDA-Public Use
  Company Number: US-BIOGENIDEC-2015BI048821

PATIENT
  Age: 60 Year
  Sex: Female

DRUGS (1)
  1. TYSABRI [Suspect]
     Active Substance: NATALIZUMAB
     Indication: MULTIPLE SCLEROSIS
     Route: 042
     Dates: start: 20061219, end: 20110810

REACTIONS (3)
  - Multiple sclerosis relapse [Recovered/Resolved]
  - Basal cell carcinoma [Not Recovered/Not Resolved]
  - Adverse drug reaction [Recovered/Resolved]

NARRATIVE: CASE EVENT DATE: 201411
